FAERS Safety Report 11141441 (Version 1)
Quarter: 2015Q2

REPORT INFORMATION
  Report Type: Spontaneous
  Country: US (occurrence: US)
  Receive Date: 20150525
  Receipt Date: 20150525
  Transmission Date: 20150821
  Serious: No
  Sender: FDA-Public Use
  Company Number: US-JNJFOC-20140211804

PATIENT
  Age: 39 Year
  Sex: Female
  Weight: 98.43 kg

DRUGS (2)
  1. QUETIAPINE [Suspect]
     Active Substance: QUETIAPINE
     Indication: PSYCHOTIC DISORDER
     Route: 048
     Dates: start: 201402
  2. RISPERDAL [Suspect]
     Active Substance: RISPERIDONE
     Indication: SCHIZOAFFECTIVE DISORDER
     Route: 048
     Dates: start: 2010

REACTIONS (5)
  - Nightmare [Unknown]
  - Amenorrhoea [Unknown]
  - Dizziness [Unknown]
  - Blood prolactin increased [Unknown]
  - Dry mouth [Unknown]

NARRATIVE: CASE EVENT DATE: 201402
